FAERS Safety Report 10565195 (Version 2)
Quarter: 2015Q1

REPORT INFORMATION
  Report Type: Spontaneous
  Country: CN (occurrence: None)
  Receive Date: 20141103
  Receipt Date: 20150122
  Transmission Date: 20150720
  Serious: Yes (Hospitalization)
  Sender: FDA-Public Use
  Company Number: 2014SEB00039

PATIENT
  Age: 64 Year
  Sex: Female

DRUGS (1)
  1. MIACALCIC [Suspect]
     Active Substance: CALCITONIN SALMON
     Indication: OSTEOPOROSIS
     Route: 045
     Dates: start: 20140116, end: 20140303

REACTIONS (5)
  - Cheilitis [None]
  - Lip exfoliation [None]
  - Hypoaesthesia oral [None]
  - Lip swelling [None]
  - Vitamin B complex deficiency [None]

NARRATIVE: CASE EVENT DATE: 20140122
